FAERS Safety Report 5599184-1 (Version None)
Quarter: 2008Q1

REPORT INFORMATION
  Report Type: 
  Country: None (occurrence: None)
  Receive Date: 20080117
  Receipt Date: 20080107
  Transmission Date: 20080703
  Serious: Yes (Other)
  Sender: FDA-Public Use
  Company Number: 230203J08USA

PATIENT
  Age: 42 Year
  Sex: Female
  Weight: 97.5234 kg

DRUGS (2)
  1. REBIF [Suspect]
     Indication: MULTIPLE SCLEROSIS
     Dosage: 44 MCG, 3 IN 1 WEEKS, SUBCUTANEOUS
     Route: 058
     Dates: start: 20050316
  2. TRILEPTAL [Concomitant]

REACTIONS (2)
  - ANAEMIA [None]
  - BACK PAIN [None]
